FAERS Safety Report 8293456-8 (Version None)
Quarter: 2012Q2

REPORT INFORMATION
  Report Type: 
  Country: None (occurrence: None)
  Receive Date: 20120417
  Receipt Date: 20120411
  Transmission Date: 20120825
  Serious: Yes (Hospitalization)
  Sender: FDA-Public Use
  Company Number: JP-MERCK-1204USA00899

PATIENT
  Age: 54 Year
  Sex: Male

DRUGS (9)
  1. CARVEDILOL [Concomitant]
     Route: 048
     Dates: start: 20110615, end: 20110725
  2. MUCODYNE [Concomitant]
     Route: 048
     Dates: start: 20110617, end: 20110723
  3. LASIX [Concomitant]
     Route: 048
     Dates: start: 20110706, end: 20110723
  4. PEPCID RPD [Suspect]
     Route: 048
     Dates: start: 20110615, end: 20110723
  5. PL-GRANULES [Suspect]
     Indication: NASOPHARYNGITIS
     Route: 048
     Dates: start: 20110715, end: 20110701
  6. VASOTEC [Concomitant]
     Route: 048
     Dates: start: 20110624, end: 20110725
  7. AMLODIPINE BESYLATE [Concomitant]
     Route: 048
     Dates: start: 20110615, end: 20110725
  8. RISPERDAL [Concomitant]
     Route: 048
     Dates: start: 20110617, end: 20110723
  9. TETRAMIDE [Concomitant]
     Route: 048
     Dates: start: 20110708, end: 20110723

REACTIONS (1)
  - STEVENS-JOHNSON SYNDROME [None]
